FAERS Safety Report 11267850 (Version 1)
Quarter: 2015Q3

REPORT INFORMATION
  Report Type: Spontaneous
  Country: US (occurrence: US)
  Receive Date: 20150713
  Receipt Date: 20150713
  Transmission Date: 20151125
  Serious: No
  Sender: FDA-Public Use
  Company Number: US-TAKEDA-2014MPI000255

PATIENT
  Age: 68 Year
  Sex: Female
  Weight: 62.58 kg

DRUGS (1)
  1. VELCADE [Suspect]
     Active Substance: BORTEZOMIB
     Indication: WALDENSTROM^S MACROGLOBULINAEMIA
     Dosage: 1.3 MG/M2, 2/WEEK
     Route: 058
     Dates: start: 20131111

REACTIONS (2)
  - Product use issue [Not Recovered/Not Resolved]
  - Conjunctivitis [Recovering/Resolving]

NARRATIVE: CASE EVENT DATE: 201401
